FAERS Safety Report 14004489 (Version 1)
Quarter: 2017Q3

REPORT INFORMATION
  Report Type: Report from Study
  Country: US (occurrence: US)
  Receive Date: 20170922
  Receipt Date: 20170922
  Transmission Date: 20171128
  Serious: Yes (Death, Other)
  Sender: FDA-Public Use
  Company Number: US-GILEAD-2017-0294748

PATIENT
  Age: 71 Year
  Sex: Female

DRUGS (14)
  1. COUMADIN [Concomitant]
     Active Substance: WARFARIN SODIUM
  2. SPIRIVA [Concomitant]
     Active Substance: TIOTROPIUM BROMIDE MONOHYDRATE
  3. ZAROXOLYN [Concomitant]
     Active Substance: METOLAZONE
  4. LASIX [Concomitant]
     Active Substance: FUROSEMIDE
  5. ASA [Concomitant]
     Active Substance: ASPIRIN
  6. ZOCOR [Concomitant]
     Active Substance: SIMVASTATIN
  7. DIGOXIN. [Concomitant]
     Active Substance: DIGOXIN
  8. METOPROLOL. [Concomitant]
     Active Substance: METOPROLOL
  9. ADCIRCA [Concomitant]
     Active Substance: TADALAFIL
  10. SPIRONOLACTONE. [Concomitant]
     Active Substance: SPIRONOLACTONE
  11. ZANTAC [Concomitant]
     Active Substance: RANITIDINE HYDROCHLORIDE
  12. AMBRISENTAN [Suspect]
     Active Substance: AMBRISENTAN
     Indication: PULMONARY ARTERIAL HYPERTENSION
     Dosage: 10 MG, QD
     Route: 065
     Dates: start: 20131203, end: 20170814
  13. FERROUS SULFATE. [Concomitant]
     Active Substance: FERROUS SULFATE
  14. DILTIAZEM. [Concomitant]
     Active Substance: DILTIAZEM

REACTIONS (1)
  - Death [Fatal]

NARRATIVE: CASE EVENT DATE: 20170814
